FAERS Safety Report 25570231 (Version 4)
Quarter: 2025Q4

REPORT INFORMATION
  Report Type: Report from Study
  Country: US (occurrence: US)
  Receive Date: 20250717
  Receipt Date: 20251008
  Transmission Date: 20260117
  Serious: Yes (Hospitalization, Other)
  Sender: ACADIA PHARMACEUTICALS
  Company Number: US-ACADIA PHARMACEUTICALS INC.-ACA-2025-PIM-008286

PATIENT
  Age: 84 Year
  Sex: Male

DRUGS (13)
  1. NUPLAZID [Suspect]
     Active Substance: PIMAVANSERIN TARTRATE
     Indication: Parkinson^s disease psychosis
     Dosage: 34 MILLIGRAM, QD
     Route: 048
     Dates: start: 20250121
  2. NUPLAZID [Suspect]
     Active Substance: PIMAVANSERIN TARTRATE
     Dosage: 34 MILLIGRAM, QD (RESTARTED)
     Route: 048
  3. AMOXICILLIN\CLAVULANATE POTASSIUM [Concomitant]
     Active Substance: AMOXICILLIN\CLAVULANATE POTASSIUM
     Dosage: UNK (500-125)
  4. CARBIDOPA\LEVODOPA [Concomitant]
     Active Substance: CARBIDOPA\LEVODOPA
     Dosage: UNK
  5. DIAZEPAM [Concomitant]
     Active Substance: DIAZEPAM
  6. GABAPENTIN [Concomitant]
     Active Substance: GABAPENTIN
  7. MAGNESIUM [Concomitant]
     Active Substance: MAGNESIUM
  8. MIRALAX [Concomitant]
     Active Substance: POLYETHYLENE GLYCOL 3350
     Dosage: UNK (3350 NF)
  9. PHENAZOPYRIDINE [Concomitant]
     Active Substance: PHENAZOPYRIDINE
  10. PRAMIPEXOLE [Concomitant]
     Active Substance: PRAMIPEXOLE
  11. BIFIDOBACTERIUM ANIMALIS LACTIS [Concomitant]
     Active Substance: BIFIDOBACTERIUM ANIMALIS LACTIS
  12. SENNA LEAF [Concomitant]
     Active Substance: SENNA LEAF
  13. TAMSULOSIN [Concomitant]
     Active Substance: TAMSULOSIN

REACTIONS (7)
  - Cardiac failure congestive [Not Recovered/Not Resolved]
  - Hallucination [Not Recovered/Not Resolved]
  - Condition aggravated [Not Recovered/Not Resolved]
  - Walking aid user [Not Recovered/Not Resolved]
  - Constipation [Not Recovered/Not Resolved]
  - Therapy interrupted [Not Recovered/Not Resolved]
  - Drug ineffective [Not Recovered/Not Resolved]

NARRATIVE: CASE EVENT DATE: 20250801
